FAERS Safety Report 17024828 (Version 1)
Quarter: 2019Q4

REPORT INFORMATION
  Report Type: Report from Study
  Country: DE (occurrence: DE)
  Receive Date: 20191113
  Receipt Date: 20191113
  Transmission Date: 20200122
  Serious: Yes (Hospitalization, Other)
  Sender: FDA-Public Use
  Company Number: PHHY2018DE165956

PATIENT
  Age: 60 Year
  Sex: Male
  Weight: 84 kg

DRUGS (4)
  1. GILENYA [Suspect]
     Active Substance: FINGOLIMOD HYDROCHLORIDE
     Indication: MULTIPLE SCLEROSIS
     Dosage: 0.5 MG, QD
     Route: 048
     Dates: start: 20180214
  2. LANTUS [Concomitant]
     Active Substance: INSULIN GLARGINE
     Indication: DIABETES MELLITUS
     Dosage: 12 IU, UNK
     Route: 065
     Dates: start: 20171101
  3. LIPROLOG [Concomitant]
     Active Substance: INSULIN LISPRO
     Indication: DIABETES MELLITUS
     Dosage: ACCORDING TO INSULIN SCHEMA
     Route: 065
     Dates: start: 20171101
  4. CETIRIZIN [Concomitant]
     Active Substance: CETIRIZINE HYDROCHLORIDE
     Indication: SEASONAL ALLERGY
     Dosage: 1 DF, PRN
     Route: 065

REACTIONS (8)
  - Visual field defect [Unknown]
  - Nasopharyngitis [Not Recovered/Not Resolved]
  - Lymphopenia [Recovered/Resolved]
  - Lymphopenia [Unknown]
  - Transient ischaemic attack [Recovered/Resolved]
  - Hemianopia [Recovered/Resolved]
  - Lymphopenia [Recovered/Resolved]
  - Cubital tunnel syndrome [Not Recovered/Not Resolved]

NARRATIVE: CASE EVENT DATE: 20180315
